FAERS Safety Report 9914894 (Version 1)
Quarter: 2014Q1

REPORT INFORMATION
  Report Type: Spontaneous
  Country: US (occurrence: US)
  Receive Date: 20140220
  Receipt Date: 20140220
  Transmission Date: 20141002
  Serious: No
  Sender: FDA-Public Use
  Company Number: US-PFIZER INC-2014045219

PATIENT
  Sex: Female

DRUGS (1)
  1. ADVIL MIGRAINE [Suspect]
     Dosage: UNK
     Route: 048

REACTIONS (3)
  - Overdose [Unknown]
  - Swelling face [Unknown]
  - Urticaria [Unknown]
